FAERS Safety Report 25961266 (Version 2)
Quarter: 2025Q4

REPORT INFORMATION
  Report Type: Spontaneous
  Country: EU (occurrence: EU)
  Receive Date: 20251027
  Receipt Date: 20251107
  Transmission Date: 20260118
  Serious: Yes (Death, Life-Threatening, Hospitalization, Other)
  Sender: HIKMA
  Company Number: None

PATIENT
  Age: 44 Year
  Sex: Female
  Weight: 60 kg

DRUGS (24)
  1. ALFACALCIDOL [Concomitant]
     Active Substance: ALFACALCIDOL
     Indication: Product used for unknown indication
     Dosage: 2 DOSAGE FORM, QD (5 DAYS)
     Route: 065
     Dates: start: 20250911
  2. CALCIUM CARBONATE\CHOLECALCIFEROL [Concomitant]
     Active Substance: CALCIUM CARBONATE\CHOLECALCIFEROL
     Indication: Product used for unknown indication
     Dosage: UNKNOWN
     Route: 065
  3. DIETARY SUPPLEMENT [Concomitant]
     Active Substance: DIETARY SUPPLEMENT
     Indication: Product used for unknown indication
     Dosage: 4 DOSAGE FORM, SINGLE (5 DAY)
     Route: 065
     Dates: start: 20250911
  4. ELIQUIS [Concomitant]
     Active Substance: APIXABAN
     Indication: Product used for unknown indication
     Dosage: 5 MILLIGRAM, SINGLE (1-0-0)
     Route: 065
  5. NEULASTA [Concomitant]
     Active Substance: PEGFILGRASTIM
     Indication: Product used for unknown indication
     Dosage: 6 MILLIGRAM, SINGLE
     Route: 065
     Dates: start: 20250910
  6. NOVALGIN (METAMIZOLE SODIUM) [Concomitant]
     Active Substance: METAMIZOLE SODIUM
     Indication: Product used for unknown indication
     Dosage: UNKNOWN
     Route: 065
  7. PANACEO BASIC [Concomitant]
     Indication: Product used for unknown indication
     Dosage: 1 DOSAGE FORM, SINGLE (0-0-1 TEASPOON)
     Route: 065
     Dates: start: 20250910, end: 20250910
  8. PANACEO BASIC [Concomitant]
     Dosage: 3 DOSAGE FORM, SINGLE (5 DAY) (3X1 TEA SPOON/ DAY)
     Route: 065
     Dates: start: 20250911
  9. METOCLOPRAMIDE HYDROCHLORIDE [Concomitant]
     Active Substance: METOCLOPRAMIDE HYDROCHLORIDE
     Indication: Product used for unknown indication
     Dosage: UNKNOWN
     Route: 065
  10. DEXIBUPROFEN [Concomitant]
     Active Substance: DEXIBUPROFEN
     Indication: Product used for unknown indication
     Dosage: 800 MILLIGRAM, QD (FOR 3 DAYS) (1-0-1)
     Route: 065
  11. TIZANIDINE [Concomitant]
     Active Substance: TIZANIDINE
     Indication: Product used for unknown indication
     Dosage: 2 MILLIGRAM
     Route: 065
  12. LEVOTHYROXINE SODIUM [Concomitant]
     Active Substance: LEVOTHYROXINE SODIUM
     Indication: Product used for unknown indication
     Dosage: 125 MILLIGRAM, SINGLE (1-0-0)
     Route: 065
  13. XGEVA [Concomitant]
     Active Substance: DENOSUMAB
     Indication: Product used for unknown indication
     Dosage: 120 MILLIGRAM
     Route: 065
     Dates: start: 2023
  14. ZEOLITE [Concomitant]
     Indication: Product used for unknown indication
     Dosage: 2X1 TEE SPOON/ DAY
     Route: 065
     Dates: start: 20250911
  15. ZOFRAN [Concomitant]
     Active Substance: ONDANSETRON HYDROCHLORIDE
     Indication: Product used for unknown indication
     Dosage: 8 MILLIGRAM
     Route: 065
  16. ZYPREXA [Concomitant]
     Active Substance: OLANZAPINE
     Indication: Product used for unknown indication
     Dosage: 5 MILLIGRAM
     Route: 065
  17. CELECOXIB [Interacting]
     Active Substance: CELECOXIB
     Indication: Product used for unknown indication
     Dosage: 2 DOSAGE FORM, SINGLE (2X1)
     Route: 065
     Dates: start: 20250907, end: 20250909
  18. CLARITHROMYCIN [Interacting]
     Active Substance: CLARITHROMYCIN
     Indication: Product used for unknown indication
     Dosage: 2 DOSAGE FORM, SINGLE (0-0-2)
     Route: 065
     Dates: start: 20250909, end: 20250909
  19. CLARITHROMYCIN [Interacting]
     Active Substance: CLARITHROMYCIN
     Dosage: 2 DOSAGE FORM, SINGLE (2-0-0)
     Route: 065
     Dates: start: 20250910, end: 20250910
  20. CURCUMIN [Interacting]
     Active Substance: CURCUMIN
     Indication: Product used for unknown indication
     Dosage: 40 DOSAGE FORM, SINGLE (20-40 - 0 - 20)
     Route: 065
     Dates: start: 20250910, end: 20250910
  21. DIETARY SUPPLEMENT\HERBALS\MILK THISTLE [Interacting]
     Active Substance: MILK THISTLE
     Dosage: 4 DOSAGE FORM, SINGLE(5 DAY) (2X2)
     Route: 065
     Dates: start: 20250911
  22. DIETARY SUPPLEMENT\HERBALS\MILK THISTLE [Interacting]
     Active Substance: MILK THISTLE
     Dosage: 10 DOSAGE FORM, SINGLE (5-0-5)
     Route: 065
     Dates: start: 20250910, end: 20250910
  23. DIETARY SUPPLEMENT\HERBALS\MILK THISTLE [Interacting]
     Active Substance: MILK THISTLE
     Indication: Product used for unknown indication
     Dosage: 2 DOSAGE FORM, SINGLE (0-0-2)
     Route: 065
     Dates: start: 20250909, end: 20250909
  24. TRABECTEDIN [Interacting]
     Active Substance: TRABECTEDIN
     Indication: Leiomyosarcoma
     Dosage: 2.43 MILLIGRAM, SINGLE (6 TH CYCLE)
     Route: 065
     Dates: start: 20250910

REACTIONS (29)
  - Anuria [Not Recovered/Not Resolved]
  - Pancytopenia [Not Recovered/Not Resolved]
  - Transaminases increased [Not Recovered/Not Resolved]
  - Blood bilirubin abnormal [Not Recovered/Not Resolved]
  - Septic shock [Not Recovered/Not Resolved]
  - Vasoplegia syndrome [Not Recovered/Not Resolved]
  - Cardiomyopathy [Not Recovered/Not Resolved]
  - Suspected drug-induced liver injury [Not Recovered/Not Resolved]
  - Acute respiratory distress syndrome [Not Recovered/Not Resolved]
  - Multiple organ dysfunction syndrome [Fatal]
  - Ascites [Fatal]
  - Pleural effusion [Fatal]
  - Hypervolaemia [Fatal]
  - Inflammatory marker increased [Not Recovered/Not Resolved]
  - Faecal vomiting [Not Recovered/Not Resolved]
  - Mechanical ileus [Not Recovered/Not Resolved]
  - Intussusception [Not Recovered/Not Resolved]
  - Generalised oedema [Not Recovered/Not Resolved]
  - Thrombosis [Recovered/Resolved]
  - Jejunectomy [Recovered/Resolved]
  - Candida infection [Not Recovered/Not Resolved]
  - Citrobacter infection [Not Recovered/Not Resolved]
  - Azotaemia [Not Recovered/Not Resolved]
  - Acute kidney injury [Not Recovered/Not Resolved]
  - Acute hepatic failure [Not Recovered/Not Resolved]
  - Blood lactic acid increased [Fatal]
  - Product prescribing error [Fatal]
  - Labelled drug-drug interaction medication error [Fatal]
  - Labelled drug-drug interaction issue [Fatal]

NARRATIVE: CASE EVENT DATE: 20250916
